FAERS Safety Report 4585948-X (Version None)
Quarter: 2005Q1

REPORT INFORMATION
  Report Type: 
  Country: None (occurrence: None)
  Receive Date: 20050214
  Receipt Date: 20050208
  Transmission Date: 20050727
  Serious: Yes (Hospitalization, Other)
  Sender: FDA-Public Use
  Company Number: GBWYE415910FEB05

PATIENT
  Age: 77 Year
  Sex: Male

DRUGS (6)
  1. ADVIL [Suspect]
     Indication: HEADACHE
     Dosage: 2 TABLETS ORAL
     Route: 048
     Dates: start: 20041113, end: 20041114
  2. BENDROFLUAZIDE (BENDROFLUMETHIAZIDE) [Concomitant]
  3. TRAMADOL HCL [Concomitant]
  4. HYDROCORTISONE [Concomitant]
  5. ATENOLOL [Concomitant]
  6. THYROXINE I 125 (THYROXINE I 125) [Concomitant]

REACTIONS (2)
  - BARRETT'S OESOPHAGUS [None]
  - HAEMATEMESIS [None]
